FAERS Safety Report 6067228-9 (Version None)
Quarter: 2009Q1

REPORT INFORMATION
  Report Type: 
  Country: None (occurrence: None)
  Receive Date: 20090205
  Receipt Date: 20090203
  Transmission Date: 20090719
  Serious: Yes (Death, Other)
  Sender: FDA-Public Use
  Company Number: PHBS2009JP00674

PATIENT
  Age: 68 Year
  Sex: Female

DRUGS (9)
  1. CYCLOSPORINE [Suspect]
     Indication: CORD BLOOD TRANSPLANT THERAPY
     Dosage: 3 MG/KG
     Route: 042
  2. CYCLOPHOSPHAMIDE [Suspect]
     Dosage: 30 MG/KG
  3. FLUDARABINE PHOSPHATE [Suspect]
     Dosage: 125 MG/M2
  4. IRRADIATION [Concomitant]
     Dosage: 4 GY
  5. POLYMYCIN B SULFATE [Concomitant]
  6. FUROSEMIDE [Concomitant]
  7. METOCLOPRAMIDE [Concomitant]
  8. HYDROXYZINE PAMOATE [Concomitant]
  9. CEFOZOPRAN [Concomitant]

REACTIONS (5)
  - ASPERGILLOSIS [None]
  - BLOOD PRESSURE INCREASED [None]
  - CONVULSION [None]
  - DEPRESSED LEVEL OF CONSCIOUSNESS [None]
  - TOXIC ENCEPHALOPATHY [None]
